FAERS Safety Report 7412340-2 (Version None)
Quarter: 2011Q2

REPORT INFORMATION
  Report Type: 
  Country: None (occurrence: None)
  Receive Date: 20110408
  Receipt Date: 20110408
  Transmission Date: 20111010
  Serious: No
  Sender: FDA-Public Use
  Company Number: None

PATIENT
  Age: 51 Year
  Sex: Female
  Weight: 63.5036 kg

DRUGS (1)
  1. PARLODEL [Suspect]
     Indication: PROLACTINOMA
     Dosage: ONE TABLET DAILY BUCCAL MORE THAN 3 YEARS
     Route: 002
     Dates: start: 20060715, end: 20090929

REACTIONS (3)
  - PARKINSON'S DISEASE [None]
  - NEUROPATHY PERIPHERAL [None]
  - PROLACTINOMA [None]
